FAERS Safety Report 7946175-9 (Version None)
Quarter: 2011Q4

REPORT INFORMATION
  Report Type: 
  Country: None (occurrence: None)
  Receive Date: 20111129
  Receipt Date: 20111123
  Transmission Date: 20120403
  Serious: Yes (Hospitalization)
  Sender: FDA-Public Use
  Company Number: IT-GLAXOSMITHKLINE-B0765535A

PATIENT
  Sex: Male

DRUGS (12)
  1. LANOXIN [Suspect]
     Indication: MYOCARDIAL ISCHAEMIA
     Dosage: .12MG PER DAY
     Route: 065
     Dates: start: 20090101, end: 20110824
  2. LUMINALE [Concomitant]
     Indication: PRODUCT USED FOR UNKNOWN INDICATION
     Route: 065
  3. OXIVENT [Concomitant]
     Indication: PRODUCT USED FOR UNKNOWN INDICATION
     Route: 065
  4. ALLOPURINOL [Concomitant]
     Indication: PRODUCT USED FOR UNKNOWN INDICATION
     Route: 065
  5. TRINIPLAS [Concomitant]
     Indication: PRODUCT USED FOR UNKNOWN INDICATION
     Route: 065
  6. BISOPROLOL FUMARATE [Concomitant]
     Indication: PRODUCT USED FOR UNKNOWN INDICATION
     Route: 065
  7. BECLOMETHASONE DIPROPIONATE [Concomitant]
     Indication: PRODUCT USED FOR UNKNOWN INDICATION
     Route: 065
  8. LISINOPRIL [Suspect]
     Indication: ACUTE MYOCARDIAL INFARCTION
     Dosage: 5MG PER DAY
     Route: 048
     Dates: start: 20090101, end: 20110824
  9. CEFTAZIDIME PENTAHYDRATE [Concomitant]
     Indication: PRODUCT USED FOR UNKNOWN INDICATION
     Route: 065
  10. ZANTAC [Concomitant]
     Indication: PRODUCT USED FOR UNKNOWN INDICATION
     Route: 065
  11. RAMIPRIL [Concomitant]
     Indication: PRODUCT USED FOR UNKNOWN INDICATION
     Route: 065
  12. COUMADIN [Suspect]
     Indication: MYOCARDIAL ISCHAEMIA
     Dosage: 5MG PER DAY
     Route: 065
     Dates: start: 20090101, end: 20110824

REACTIONS (2)
  - ASTHENIA [None]
  - COUGH [None]
